FAERS Safety Report 18468986 (Version 1)
Quarter: 2020Q4

REPORT INFORMATION
  Report Type: Spontaneous
  Country: US (occurrence: US)
  Receive Date: 20201105
  Receipt Date: 20201105
  Transmission Date: 20210114
  Serious: Yes (Other)
  Sender: FDA-Public Use
  Company Number: None

PATIENT
  Age: 62 Year
  Sex: Male
  Weight: 81 kg

DRUGS (5)
  1. AMLODIPINE [Concomitant]
     Active Substance: AMLODIPINE BESYLATE
  2. FLOVENT HFA [Suspect]
     Active Substance: FLUTICASONE PROPIONATE
     Indication: ASTHMA
     Dosage: ?          QUANTITY:2 PUFF(S);?
     Route: 055
     Dates: start: 20201026, end: 20201102
  3. PULMICORT TURBUHALER [Concomitant]
     Active Substance: BUDESONIDE
  4. HYDROCHLOROTHIAZIDE. [Concomitant]
     Active Substance: HYDROCHLOROTHIAZIDE
  5. IMMUNOTHERAPY INJECTIONS [Concomitant]

REACTIONS (3)
  - Wheezing [None]
  - Bronchospasm [None]
  - Chest discomfort [None]

NARRATIVE: CASE EVENT DATE: 20201026
